FAERS Safety Report 8879032 (Version 1)
Quarter: 2012Q4

REPORT INFORMATION
  Report Type: 
  Country: US (occurrence: None)
  Receive Date: 20121031
  Receipt Date: 20121031
  Transmission Date: 20130627
  Serious: Yes (Hospitalization)
  Sender: FDA-Public Use
  Company Number: None

PATIENT
  Sex: Male
  Weight: 53 kg

DRUGS (6)
  1. CYTARABINE [Suspect]
     Dates: start: 20121006
  2. DAUNORUBICIN [Suspect]
     Dates: start: 20121013
  3. METHOTREXATE [Suspect]
     Dates: start: 20121013
  4. PEG-L-ASPARAGINASE (PEGASPARGASE, ONCOSPAR) [Suspect]
     Dates: start: 20121009
  5. PREDNISONE [Suspect]
     Dates: start: 20121016
  6. VINCRISTINE SULFATE [Suspect]
     Dates: start: 20121013

REACTIONS (4)
  - Appendicitis [None]
  - Sepsis [None]
  - Pancytopenia [None]
  - Tachycardia [None]
